FAERS Safety Report 17960233 (Version 1)
Quarter: 2020Q2

REPORT INFORMATION
  Report Type: Report from Study
  Country: US (occurrence: US)
  Receive Date: 20200630
  Receipt Date: 20200630
  Transmission Date: 20200714
  Serious: No
  Sender: FDA-Public Use
  Company Number: US-BIOVITRUM-2019US2258

PATIENT
  Sex: Female

DRUGS (1)
  1. KINERET [Suspect]
     Active Substance: ANAKINRA
     Indication: GOUT
     Dosage: 1 SYRINGE DAILY UP TO 5 DAYS AS NEEDED FOR GOUT FLARE
     Route: 058
     Dates: start: 20190716

REACTIONS (4)
  - Off label use [Not Recovered/Not Resolved]
  - Pain in extremity [Unknown]
  - Gout [Unknown]
  - Epistaxis [Unknown]
